FAERS Safety Report 19510766 (Version 1)
Quarter: 2021Q3

REPORT INFORMATION
  Report Type: Other
  Country: CA (occurrence: CA)
  Receive Date: 20210709
  Receipt Date: 20210709
  Transmission Date: 20211014
  Serious: Yes (Other)
  Sender: FDA-Public Use
  Company Number: CA-APOTEX-2021AP016602

PATIENT
  Age: 35 Year
  Sex: Male

DRUGS (2)
  1. IMATINIB. [Suspect]
     Active Substance: IMATINIB MESYLATE
     Indication: MYELOPROLIFERATIVE NEOPLASM
     Dosage: 400 MILLIGRAM, QD
     Route: 065
  2. IMATINIB. [Suspect]
     Active Substance: IMATINIB MESYLATE
     Indication: HYPEREOSINOPHILIC SYNDROME

REACTIONS (4)
  - Myelitis transverse [Recovered/Resolved]
  - Demyelination [Recovered/Resolved]
  - Blindness [Recovered/Resolved]
  - Optic neuritis [Recovered/Resolved]
